FAERS Safety Report 5342403-7 (Version None)
Quarter: 2007Q2

REPORT INFORMATION
  Report Type: 
  Country: None (occurrence: None)
  Receive Date: 20070601
  Receipt Date: 20070524
  Transmission Date: 20071010
  Serious: Yes (Hospitalization)
  Sender: FDA-Public Use
  Company Number: FR-ROCHE-469150

PATIENT
  Age: 44 Year
  Sex: Female
  Weight: 52 kg

DRUGS (7)
  1. DACLIZUMAB [Suspect]
     Route: 065
     Dates: start: 20061012
  2. MYCOPHENOLATE MOFETIL [Suspect]
     Route: 048
     Dates: start: 20060928
  3. CYCLOSPORINE [Suspect]
     Route: 065
     Dates: start: 20061002
  4. CALCIUM CARBONATE [Concomitant]
     Dates: start: 20061006
  5. FUROSEMIDE [Concomitant]
     Dates: start: 20061008
  6. VITAMINE D [Concomitant]
     Dates: start: 20061008
  7. MAGNESIUM CHLORIDE [Concomitant]
     Dates: start: 20061002

REACTIONS (1)
  - URINARY TRACT INFECTION [None]
